FAERS Safety Report 6456155-0 (Version None)
Quarter: 2009Q4

REPORT INFORMATION
  Report Type: 
  Country: None (occurrence: None)
  Receive Date: 20091125
  Receipt Date: 20091116
  Transmission Date: 20100525
  Serious: Yes (Hospitalization)
  Sender: FDA-Public Use
  Company Number: FR-ASTRAZENECA-2009SE26954

PATIENT
  Age: 69 Year
  Sex: Male

DRUGS (8)
  1. NEXIUM [Suspect]
     Route: 048
     Dates: end: 20091006
  2. CALCIPARINE [Suspect]
     Dates: end: 20091006
  3. ACETAMINOPHEN [Suspect]
     Route: 048
     Dates: end: 20091006
  4. PERINDOPRIL ERBUMINE [Suspect]
     Route: 048
     Dates: end: 20091006
  5. ASPIRIN [Suspect]
     Route: 048
     Dates: end: 20091006
  6. PAROXETINE HCL [Suspect]
     Route: 048
     Dates: end: 20091006
  7. LASILIX [Suspect]
     Route: 048
     Dates: end: 20091006
  8. DEPAKINE CHRONO [Concomitant]
     Route: 048

REACTIONS (1)
  - EOSINOPHILIA [None]
